FAERS Safety Report 7618288-2 (Version None)
Quarter: 2011Q3

REPORT INFORMATION
  Report Type: 
  Country: None (occurrence: None)
  Receive Date: 20110718
  Receipt Date: 20110218
  Transmission Date: 20111222
  Serious: Yes (Hospitalization)
  Sender: FDA-Public Use
  Company Number: FR-ROCHE-761508

PATIENT
  Sex: Female

DRUGS (3)
  1. TACROLIMUS [Suspect]
     Route: 065
     Dates: start: 20091029, end: 20101110
  2. MYCOPHENOLATE MOFETIL [Suspect]
     Indication: PROPHYLAXIS
     Dosage: LAST DOSE PRIOR TO SAE 01 AUGUST 2010
     Route: 048
     Dates: start: 20091030
  3. PREDNISONE [Suspect]
     Indication: PROPHYLAXIS
     Dosage: LAST DOSE PRIOR TO SAE 12 JULY 2010.
     Route: 065
     Dates: start: 20091030

REACTIONS (1)
  - GASTROINTESTINAL DISORDER [None]
